FAERS Safety Report 25334534 (Version 1)
Quarter: 2025Q2

REPORT INFORMATION
  Report Type: Spontaneous
  Country: US (occurrence: US)
  Receive Date: 20250520
  Receipt Date: 20250520
  Transmission Date: 20250717
  Serious: Yes (Other)
  Sender: RADIUS PHARM
  Company Number: US-RADIUS HEALTH INC.-US-RADIUS-25047418

PATIENT
  Age: 61 Year
  Sex: Female
  Weight: 47.166 kg

DRUGS (1)
  1. TYMLOS [Suspect]
     Active Substance: ABALOPARATIDE
     Indication: Senile osteoporosis
     Dosage: 80 MICROGRAM, QD
     Route: 058
     Dates: start: 20250409, end: 2025

REACTIONS (10)
  - Syncope [Not Recovered/Not Resolved]
  - Gastrooesophageal reflux disease [Unknown]
  - Condition aggravated [Not Recovered/Not Resolved]
  - Abdominal pain upper [Not Recovered/Not Resolved]
  - Back pain [Not Recovered/Not Resolved]
  - Flatulence [Not Recovered/Not Resolved]
  - Somnolence [Not Recovered/Not Resolved]
  - Nausea [Not Recovered/Not Resolved]
  - Dizziness [Not Recovered/Not Resolved]
  - Drug ineffective [Unknown]

NARRATIVE: CASE EVENT DATE: 20250409
